FAERS Safety Report 7798124-4 (Version None)
Quarter: 2011Q4

REPORT INFORMATION
  Report Type: 
  Country: None (occurrence: None)
  Receive Date: 20111005
  Receipt Date: 20110927
  Transmission Date: 20120403
  Serious: No
  Sender: FDA-Public Use
  Company Number: US-B.I. PHARMACEUTICALS,INC./RIDGEFIELD-2011-BP-22966BP

PATIENT
  Sex: Male

DRUGS (4)
  1. PRADAXA [Suspect]
     Indication: ATRIAL FIBRILLATION
     Dosage: 300 MG
     Route: 048
     Dates: start: 20110831
  2. DIOVAN [Concomitant]
     Indication: HYPERTENSION
  3. DIGOXIN [Concomitant]
     Indication: CARDIAC DISORDER
  4. ZIAC [Concomitant]
     Indication: HYPERTENSION

REACTIONS (11)
  - DIARRHOEA [None]
  - DECREASED APPETITE [None]
  - FATIGUE [None]
  - DIZZINESS [None]
  - VISION BLURRED [None]
  - FLATULENCE [None]
  - PRURITUS [None]
  - DYSPEPSIA [None]
  - GOUT [None]
  - CONSTIPATION [None]
  - INSOMNIA [None]
